FAERS Safety Report 9314966 (Version 1)
Quarter: 2013Q2

REPORT INFORMATION
  Report Type: Spontaneous
  Country: US (occurrence: US)
  Receive Date: 20130529
  Receipt Date: 20130529
  Transmission Date: 20140414
  Serious: Yes (Hospitalization)
  Sender: FDA-Public Use
  Company Number: US-GLAXOSMITHKLINE-A0788950A

PATIENT
  Age: 75 Year
  Sex: Female

DRUGS (1)
  1. AVANDIA [Suspect]
     Indication: TYPE 2 DIABETES MELLITUS
     Dosage: 4MG TWICE PER DAY
     Route: 048
     Dates: start: 200401, end: 200512

REACTIONS (5)
  - Myocardial infarction [Not Recovered/Not Resolved]
  - Renal failure [Unknown]
  - Cardiac failure congestive [Unknown]
  - Local swelling [Unknown]
  - Joint swelling [Unknown]
